FAERS Safety Report 4324804-9 (Version None)
Quarter: 2004Q1

REPORT INFORMATION
  Report Type: 
  Country: None (occurrence: None)
  Receive Date: 20040326
  Receipt Date: 20040316
  Transmission Date: 20041129
  Serious: Yes (Hospitalization)
  Sender: FDA-Public Use
  Company Number: FR-GLAXOSMITHKLINE-B0326820A

PATIENT
  Age: 54 Year
  Sex: Male

DRUGS (2)
  1. VENTOLIN [Suspect]
     Dosage: 100MCG PER DAY
     Route: 055
  2. LOCABIOTAL [Suspect]
     Route: 055

REACTIONS (2)
  - PRURITUS [None]
  - RASH [None]
